FAERS Safety Report 18652109 (Version 3)
Quarter: 2021Q1

REPORT INFORMATION
  Report Type: Report from Study
  Country: CA (occurrence: CA)
  Receive Date: 20201222
  Receipt Date: 20210121
  Transmission Date: 20210419
  Serious: Yes (Life-Threatening, Other)
  Sender: FDA-Public Use
  Company Number: CA-PFIZER INC-2020502367

PATIENT
  Age: 57 Year
  Weight: 76.7 kg

DRUGS (11)
  1. CRIZOTINIB [Suspect]
     Active Substance: CRIZOTINIB
     Dosage: 250 MG, DAILY
     Route: 048
     Dates: start: 20201215, end: 20201217
  2. FUROSEMIDE. [Concomitant]
     Active Substance: FUROSEMIDE
     Indication: CARDIAC TAMPONADE
     Dosage: 40 MG, DAILY IN THE MORNING
     Dates: start: 20191126
  3. REACTIN [DICLOFENAC SODIUM] [Concomitant]
     Indication: SEASONAL ALLERGY
     Dosage: 20 MG, 1X/DAY
     Dates: start: 20200417
  4. ALVESCO [Concomitant]
     Active Substance: CICLESONIDE
     Indication: ASTHMA
     Dosage: 1 DF, DAILY (1 PUFF, DAILY AT BED TIME)
     Dates: start: 201909
  5. FUROSEMIDE. [Concomitant]
     Active Substance: FUROSEMIDE
     Dosage: 40 MG, DAILY IN THE EVENING
  6. VENTOLINE [SALBUTAMOL] [Concomitant]
     Active Substance: ALBUTEROL SULFATE
     Indication: ASTHMA
     Dosage: 2 PUFFS, 3X/DAY AS NEEDED
     Dates: start: 201904
  7. SENOKOT [Concomitant]
     Active Substance: SENNOSIDES
     Indication: CONSTIPATION PROPHYLAXIS
     Dosage: 8.6 MG, DAILATY BED TIME AS NEEDED
     Dates: start: 202001
  8. CRIZOTINIB [Suspect]
     Active Substance: CRIZOTINIB
     Indication: LUNG NEOPLASM MALIGNANT
     Dosage: 250 MG, 2X/DAY
     Route: 048
     Dates: start: 20191206
  9. ONDASETRON [ONDANSETRON] [Concomitant]
     Indication: NAUSEA
     Dosage: 4 MG, AS NEEDED 4 TIMES A DAY
     Dates: start: 20191209
  10. BREO ELLIPTA [Concomitant]
     Active Substance: FLUTICASONE FUROATE\VILANTEROL TRIFENATATE
     Indication: ASTHMA
     Dosage: 200/25 ? 1 INHALATION, 1X/DAY
  11. TYLENOL [Concomitant]
     Active Substance: ACETAMINOPHEN
     Indication: HEADACHE
     Dosage: 500 MG, 3X/DAY AS NEEDED
     Dates: start: 202001

REACTIONS (2)
  - Hyponatraemia [Recovered/Resolved]
  - Hyponatraemia [Recovered/Resolved]

NARRATIVE: CASE EVENT DATE: 20201215
